FAERS Safety Report 6643923-5 (Version None)
Quarter: 2010Q1

REPORT INFORMATION
  Report Type: 
  Country: None (occurrence: None)
  Receive Date: 20100322
  Receipt Date: 20100311
  Transmission Date: 20100710
  Serious: Yes (Other)
  Sender: FDA-Public Use
  Company Number: TR-ELI_LILLY_AND_COMPANY-TR200911003061

PATIENT
  Sex: Female

DRUGS (2)
  1. HUMULIN N [Suspect]
     Indication: GESTATIONAL DIABETES
     Dosage: 3 IU, 3/D
     Route: 058
     Dates: start: 20090209, end: 20090809
  2. HUMULIN R [Suspect]
     Indication: GESTATIONAL DIABETES
     Dosage: 2 IU, 2/D
     Route: 058
     Dates: start: 20090209, end: 20090809

REACTIONS (2)
  - DRUG EXPOSURE DURING PREGNANCY [None]
  - RENAL HAEMORRHAGE [None]
